FAERS Safety Report 5318209-1 (Version None)
Quarter: 2007Q2

REPORT INFORMATION
  Report Type: 
  Country: None (occurrence: None)
  Receive Date: 20070507
  Receipt Date: 20070426
  Transmission Date: 20071010
  Serious: Yes (Death, Hospitalization, Other)
  Sender: FDA-Public Use
  Company Number: US-PFIZER INC-2007022882

PATIENT
  Sex: Female
  Weight: 95.3 kg

DRUGS (3)
  1. BEXTRA [Suspect]
     Indication: ARTHRITIS
     Dates: start: 20020905, end: 20020915
  2. BEXTRA [Suspect]
     Indication: ARTHRALGIA
  3. VIOXX [Suspect]
     Indication: ARTHRITIS
     Dates: start: 20000101, end: 20020915

REACTIONS (2)
  - CARDIOVASCULAR DISORDER [None]
  - PULMONARY EMBOLISM [None]
